FAERS Safety Report 16025990 (Version 1)
Quarter: 2019Q1

REPORT INFORMATION
  Report Type: Spontaneous
  Country: IT (occurrence: IT)
  Receive Date: 20190302
  Receipt Date: 20190302
  Transmission Date: 20190418
  Serious: Yes (Hospitalization, Other)
  Sender: FDA-Public Use
  Company Number: IT-AUROBINDO-AUR-APL-2019-006139

PATIENT

DRUGS (2)
  1. ARIPIPRAZOLE TABLETS 5MG [Suspect]
     Active Substance: ARIPIPRAZOLE
     Indication: PRODUCT USED FOR UNKNOWN INDICATION
     Dosage: 70 MILLIGRAM, UNK
     Route: 065
  2. ARIPIPRAZOLE TABLETS 5MG [Suspect]
     Active Substance: ARIPIPRAZOLE
     Dosage: 14 DOSAGE FORM (14 TABLETS OF 5 MG)
     Route: 048

REACTIONS (4)
  - Atrioventricular block second degree [Recovered/Resolved]
  - Suicide attempt [Recovered/Resolved]
  - Overdose [Recovered/Resolved]
  - Drug abuse [Recovered/Resolved]
